FAERS Safety Report 10050184 (Version 1)
Quarter: 2014Q2

REPORT INFORMATION
  Report Type: Spontaneous
  Country: FR (occurrence: FR)
  Receive Date: 20140401
  Receipt Date: 20140401
  Transmission Date: 20141212
  Serious: Yes (Other)
  Sender: FDA-Public Use
  Company Number: FR-ASTRAZENECA-2014SE20992

PATIENT
  Age: 21757 Day
  Sex: Male

DRUGS (5)
  1. DIPRIVAN [Suspect]
     Indication: GENERAL ANAESTHESIA
     Route: 042
     Dates: start: 20130923, end: 20130923
  2. ULTIVA [Suspect]
     Indication: GENERAL ANAESTHESIA
     Route: 042
     Dates: start: 20130923, end: 20130923
  3. NIMBEX [Suspect]
     Indication: NEUROMUSCULAR BLOCKING THERAPY
     Route: 042
     Dates: start: 20130923, end: 20130923
  4. CEFAMANDOLE [Suspect]
     Indication: ANTIBIOTIC PROPHYLAXIS
     Route: 065
     Dates: start: 20130923, end: 20130923
  5. PERINDOPRIL [Concomitant]

REACTIONS (4)
  - Tachycardia [Recovered/Resolved]
  - Anaphylactoid reaction [Recovered/Resolved]
  - Hypotension [Recovered/Resolved]
  - Erythema [Recovered/Resolved]
